FAERS Safety Report 7409027-9 (Version None)
Quarter: 2011Q2

REPORT INFORMATION
  Report Type: 
  Country: None (occurrence: None)
  Receive Date: 20110412
  Receipt Date: 20110331
  Transmission Date: 20111010
  Serious: Yes (Other)
  Sender: FDA-Public Use
  Company Number: PHHY2011TR26441

PATIENT
  Age: 54 Year
  Sex: Female

DRUGS (2)
  1. RIBAVIRIN [Suspect]
     Indication: HEPATITIS CHRONIC ACTIVE
     Dosage: 1 G, DAILY
  2. INTERFERON ALFA-2B [Suspect]
     Indication: HEPATITIS C
     Dosage: 1.5 UG/KG, QW

REACTIONS (3)
  - CHEILITIS [None]
  - TONGUE PIGMENTATION [None]
  - BURNING SENSATION [None]
